FAERS Safety Report 16902898 (Version 3)
Quarter: 2019Q4

REPORT INFORMATION
  Report Type: Other
  Country: IT (occurrence: IT)
  Receive Date: 20191010
  Receipt Date: 20191218
  Transmission Date: 20200122
  Serious: Yes (Hospitalization, Other)
  Sender: FDA-Public Use
  Company Number: IT-MACLEODS PHARMACEUTICALS US LTD-MAC2019023173

PATIENT

DRUGS (4)
  1. ARIPIPRAZOLE TABLET [Suspect]
     Active Substance: ARIPIPRAZOLE
     Indication: PRODUCT USED FOR UNKNOWN INDICATION
     Dosage: 200 MILLIGRAM
     Route: 048
  2. BUPROPION. [Suspect]
     Active Substance: BUPROPION
     Indication: PRODUCT USED FOR UNKNOWN INDICATION
     Dosage: 1500 MILLIGRAM
     Route: 048
  3. VENLAFAXINE [Suspect]
     Active Substance: VENLAFAXINE HYDROCHLORIDE
     Indication: PRODUCT USED FOR UNKNOWN INDICATION
     Dosage: 1500 MILLIGRAM, PROLONGED-RELEASE TABLET
     Route: 048
  4. GABAPENTIN. [Suspect]
     Active Substance: GABAPENTIN
     Indication: PRODUCT USED FOR UNKNOWN INDICATION
     Dosage: 1000 MILLIGRAM
     Route: 048

REACTIONS (4)
  - Epilepsy [Unknown]
  - Supraventricular tachycardia [Unknown]
  - Psychomotor hyperactivity [Unknown]
  - Intentional overdose [Unknown]

NARRATIVE: CASE EVENT DATE: 20190329
